FAERS Safety Report 17753281 (Version 1)
Quarter: 2020Q2

REPORT INFORMATION
  Report Type: Spontaneous
  Country: US (occurrence: US)
  Receive Date: 20200506
  Receipt Date: 20200506
  Transmission Date: 20200714
  Serious: No
  Sender: FDA-Public Use
  Company Number: US-ROCHE-2533891

PATIENT
  Sex: Female

DRUGS (8)
  1. VITAMIN B [Concomitant]
     Active Substance: VITAMIN B
  2. ELIQUIS [Concomitant]
     Active Substance: APIXABAN
  3. PAXIL [Concomitant]
     Active Substance: PAROXETINE HYDROCHLORIDE
  4. PROPAFENONE. [Concomitant]
     Active Substance: PROPAFENONE
  5. TYLENOL [Concomitant]
     Active Substance: ACETAMINOPHEN
  6. ESBRIET [Suspect]
     Active Substance: PIRFENIDONE
     Indication: IDIOPATHIC PULMONARY FIBROSIS
     Route: 048
  7. ZYRTEC [Concomitant]
     Active Substance: CETIRIZINE HYDROCHLORIDE
  8. SIMVASTATIN. [Concomitant]
     Active Substance: SIMVASTATIN

REACTIONS (2)
  - Sinus disorder [Not Recovered/Not Resolved]
  - Rhinorrhoea [Not Recovered/Not Resolved]
